FAERS Safety Report 4799219-X (Version None)
Quarter: 2005Q4

REPORT INFORMATION
  Report Type: 
  Country: None (occurrence: None)
  Receive Date: 20051014
  Receipt Date: 20050315
  Transmission Date: 20060501
  Serious: Yes (Death)
  Sender: FDA-Public Use
  Company Number: GB-MERCK-0503GBR00132

PATIENT
  Age: 75 Year
  Sex: Male
  Weight: 57 kg

DRUGS (5)
  1. ZOCOR [Suspect]
     Indication: HYPERLIPIDAEMIA
     Route: 048
     Dates: start: 20020801, end: 20050221
  2. METFORMIN [Concomitant]
     Indication: DIABETES MELLITUS
     Route: 048
     Dates: start: 20030201, end: 20050220
  3. LORAZEPAM [Concomitant]
     Route: 048
     Dates: end: 20050220
  4. ACETAMINOPHEN [Concomitant]
     Indication: PROCEDURAL PAIN
     Route: 048
     Dates: start: 20041201
  5. ASPIRIN [Concomitant]
     Indication: PROPHYLAXIS
     Route: 048
     Dates: end: 20050220

REACTIONS (1)
  - HEPATIC NECROSIS [None]
